FAERS Safety Report 21053510 (Version 2)
Quarter: 2022Q3

REPORT INFORMATION
  Report Type: Spontaneous
  Country: US (occurrence: US)
  Receive Date: 20220707
  Receipt Date: 20220728
  Transmission Date: 20221027
  Serious: Yes (Hospitalization)
  Sender: FDA-Public Use
  Company Number: US-TEVA-2022-US-2052481

PATIENT
  Age: 10 Year
  Sex: Male

DRUGS (2)
  1. NOREPINEPHRINE [Suspect]
     Active Substance: NOREPINEPHRINE
     Indication: Blood pressure management
     Route: 065
  2. PROPOFOL [Suspect]
     Active Substance: PROPOFOL
     Indication: Sedative therapy
     Dosage: DOSE: AVERAGE RATE OF 8.3 MG/KG/H (3-10.8 MG/KG/H) OVER 65 HOURS?ROUTE: {INFUSION}
     Route: 050

REACTIONS (4)
  - Propofol infusion syndrome [Unknown]
  - Rhabdomyolysis [Unknown]
  - Brugada syndrome [Unknown]
  - Toxicity to various agents [Unknown]
